FAERS Safety Report 7852096-2 (Version None)
Quarter: 2011Q4

REPORT INFORMATION
  Report Type: 
  Country: None (occurrence: None)
  Receive Date: 20111026
  Receipt Date: 20111021
  Transmission Date: 20120403
  Serious: Yes (Other)
  Sender: FDA-Public Use
  Company Number: BR-PFIZER INC-2011256780

PATIENT

DRUGS (1)
  1. VARENICLINE TARTRATE [Suspect]
     Indication: TOBACCO USER
     Route: 048

REACTIONS (1)
  - NEOPLASM MALIGNANT [None]
